FAERS Safety Report 24015636 (Version 1)
Quarter: 2024Q2

REPORT INFORMATION
  Report Type: Report from Study
  Country: ES (occurrence: ES)
  Receive Date: 20240626
  Receipt Date: 20240626
  Transmission Date: 20240716
  Serious: Yes (Death, Hospitalization)
  Sender: FDA-Public Use
  Company Number: ES-KYOWA KIRIN-2018BKK000661

PATIENT
  Age: 59 Year
  Sex: Female

DRUGS (21)
  1. LIDOCAINE [Suspect]
     Active Substance: LIDOCAINE
     Indication: Analgesic therapy
     Dosage: 1 DOSAGE FORM, EVERY 6 HRS
     Route: 061
  2. LIDOCAINE [Suspect]
     Active Substance: LIDOCAINE
     Dosage: 1 DOSAGE FORM, EVERY 12 HRS
     Route: 061
  3. FENTANYL [Suspect]
     Active Substance: FENTANYL\FENTANYL CITRATE
     Indication: Breakthrough pain
     Dosage: 100 MICROGRAM, AS NEEDED
  4. FENTANYL [Suspect]
     Active Substance: FENTANYL\FENTANYL CITRATE
     Dosage: 6 DOSAGE FORM
  5. FENTANYL [Suspect]
     Active Substance: FENTANYL\FENTANYL CITRATE
     Dosage: 200 MICROGRAM, AS NEEDED
  6. FENTANYL [Suspect]
     Active Substance: FENTANYL\FENTANYL CITRATE
     Dosage: 2 DOSAGE FORM, 1/DAY
  7. FENTANYL [Suspect]
     Active Substance: FENTANYL\FENTANYL CITRATE
     Dosage: 300 MICROGRAM, AS NEEDED
  8. FENTANYL [Suspect]
     Active Substance: FENTANYL\FENTANYL CITRATE
     Dosage: 400 MICROGRAM, AS NEEDED
  9. TAPENTADOL [Suspect]
     Active Substance: TAPENTADOL
     Indication: Analgesic therapy
     Dosage: 25 MILLIGRAM, 1/DAY
  10. TAPENTADOL [Suspect]
     Active Substance: TAPENTADOL
     Dosage: UNK
  11. FENTANYL [Suspect]
     Active Substance: FENTANYL\FENTANYL CITRATE
     Indication: Pain
     Dosage: 50 MICROGRAM
  12. FENTANYL [Suspect]
     Active Substance: FENTANYL\FENTANYL CITRATE
     Dosage: 100 MICROGRAM, 1/DAY
  13. FENTANYL [Suspect]
     Active Substance: FENTANYL\FENTANYL CITRATE
     Dosage: 150 MICROGRAM, 1/DAY
  14. PREGABALIN [Suspect]
     Active Substance: PREGABALIN
     Indication: Analgesic therapy
     Dosage: 25 MILLIGRAM, 1/DAY
  15. PREGABALIN [Suspect]
     Active Substance: PREGABALIN
     Dosage: 75 MILLIGRAM, EVERY 8 HRS
  16. NALOXONE HYDROCHLORIDE\OXYCODONE HYDROCHLORIDE [Suspect]
     Active Substance: NALOXONE HYDROCHLORIDE\OXYCODONE HYDROCHLORIDE
     Indication: Analgesic therapy
     Dosage: 1 DOSAGE FORM, EVERY 12 HRS
  17. AMITRIPTYLINE HYDROCHLORIDE [Suspect]
     Active Substance: AMITRIPTYLINE HYDROCHLORIDE
     Indication: Analgesic therapy
     Dosage: 10 MILLIGRAM, 1/DAY
  18. OXYCODONE [Suspect]
     Active Substance: OXYCODONE\OXYCODONE HYDROCHLORIDE
     Indication: Analgesic therapy
     Dosage: 40 MILLIGRAM, EVERY 12 HRS
  19. ERLOTINIB [Concomitant]
     Active Substance: ERLOTINIB
     Indication: EGFR gene mutation
     Dosage: 150 MILLIGRAM
  20. ZOMETA [Concomitant]
     Active Substance: ZOLEDRONIC ACID
     Indication: EGFR gene mutation
     Dosage: 4 MILLIGRAM, 1/MONTH
  21. DEXAMETHASONE [Concomitant]
     Active Substance: DEXAMETHASONE
     Indication: Pain
     Dosage: 4 MILLIGRAM, EVERY 12 HRS

REACTIONS (8)
  - Disease progression [Fatal]
  - Insomnia [Recovered/Resolved]
  - Decreased appetite [Recovered/Resolved]
  - Nausea [Recovered/Resolved]
  - Malaise [Recovered/Resolved]
  - Night sweats [Recovered/Resolved]
  - Rash [Unknown]
  - Inappropriate schedule of product administration [Unknown]
